FAERS Safety Report 13235853 (Version 1)
Quarter: 2017Q1

REPORT INFORMATION
  Report Type: Report from Study
  Country: US (occurrence: US)
  Receive Date: 20170215
  Receipt Date: 20170215
  Transmission Date: 20170428
  Serious: Yes (Other)
  Sender: FDA-Public Use
  Company Number: US-AMGEN-USASL2017022321

PATIENT
  Age: 69 Year
  Sex: Female
  Weight: 70.9 kg

DRUGS (15)
  1. PROCRIT [Suspect]
     Active Substance: ERYTHROPOIETIN
     Indication: HAEMOGLOBIN DECREASED
     Dosage: 40000 UNIT, QWK
     Route: 065
  2. JAKAFI [Concomitant]
     Active Substance: RUXOLITINIB
     Indication: LEUKOCYTOSIS
  3. JAKAFI [Concomitant]
     Active Substance: RUXOLITINIB
     Indication: MYELOFIBROSIS
  4. JAKAFI [Concomitant]
     Active Substance: RUXOLITINIB
     Indication: SPLENOMEGALY
  5. TYLENOL EXTRA STRENGTH [Concomitant]
     Active Substance: ACETAMINOPHEN
     Dosage: UNK UNK, AS NECESSARY
     Route: 048
  6. RUXOLITINIB [Concomitant]
     Active Substance: RUXOLITINIB
     Indication: SPLENOMEGALY
  7. RUXOLITINIB [Concomitant]
     Active Substance: RUXOLITINIB
     Indication: HAEMOLYTIC ANAEMIA
     Dosage: 20 MG, BID
     Route: 048
     Dates: start: 201506
  8. RUXOLITINIB [Concomitant]
     Active Substance: RUXOLITINIB
     Indication: LEUKOCYTOSIS
  9. JAKAFI [Concomitant]
     Active Substance: RUXOLITINIB
     Indication: HAEMOLYTIC ANAEMIA
     Dosage: 20 MG, QD
  10. COMPAZINE [Concomitant]
     Active Substance: PROCHLORPERAZINE MALEATE
     Indication: NAUSEA
     Dosage: 10 MG, Q6H AS NEEDED
     Route: 048
  11. LEVOTHYROXINE. [Concomitant]
     Active Substance: LEVOTHYROXINE
     Dosage: 50 MUG, QD
     Route: 048
  12. RUXOLITINIB [Concomitant]
     Active Substance: RUXOLITINIB
     Indication: MYELOFIBROSIS
  13. HYDRODIURIL [Concomitant]
     Active Substance: HYDROCHLOROTHIAZIDE
     Dosage: 12.5 MG, QD
     Route: 048
  14. ASPIRIN. [Concomitant]
     Active Substance: ASPIRIN
     Dosage: 325 MG, QD
     Route: 048
  15. ULTRAM [Concomitant]
     Active Substance: TRAMADOL HYDROCHLORIDE
     Dosage: 50 MG, Q6H AS NEEDED
     Route: 048

REACTIONS (10)
  - Leukocytosis [Unknown]
  - Tricuspid valve incompetence [Unknown]
  - Left atrial dilatation [Unknown]
  - Abdominal pain [Unknown]
  - Splenomegaly [Recovering/Resolving]
  - Mitral valve incompetence [Unknown]
  - Haemolytic anaemia [Unknown]
  - Myelofibrosis [Unknown]
  - Rectal haemorrhage [Recovered/Resolved]
  - Fatigue [Not Recovered/Not Resolved]
